FAERS Safety Report 17350771 (Version 1)
Quarter: 2020Q1

REPORT INFORMATION
  Report Type: Report from Study
  Country: ES (occurrence: ES)
  Receive Date: 20200130
  Receipt Date: 20200130
  Transmission Date: 20200409
  Serious: Yes (Hospitalization)
  Sender: FDA-Public Use
  Company Number: ES-TEVA-2020-ES-1176577

PATIENT
  Age: 95 Year
  Sex: Female

DRUGS (6)
  1. DENOSUMAB (8418A) [Concomitant]
     Active Substance: DENOSUMAB
     Dosage: 20 MG
     Route: 058
     Dates: start: 20180321, end: 20190806
  2. BISOPROLOL (2328A) [Concomitant]
     Active Substance: BISOPROLOL
     Dosage: 2.5 MG
     Route: 048
     Dates: start: 20180123, end: 20190806
  3. ALDOCUMAR 1 MG COMPRIMIDOS, 40 COMPRIMIDOS [Interacting]
     Active Substance: WARFARIN SODIUM
     Dosage: 1 DOSAGE FORMS
     Route: 048
     Dates: start: 20190222, end: 20190806
  4. ACETILSALICILICO ACIDO (176A) [Interacting]
     Active Substance: ASPIRIN
     Dosage: 100 MG
     Route: 048
     Dates: start: 201706, end: 20190806
  5. PANTOPRAZOL (7275A) [Concomitant]
     Active Substance: PANTOPRAZOLE
     Dosage: 20 MG
     Route: 048
     Dates: start: 20180123
  6. SIMVASTATINA (1023A) [Suspect]
     Active Substance: SIMVASTATIN
     Dosage: 20 MG
     Route: 048
     Dates: start: 20180216, end: 20190806

REACTIONS (2)
  - Upper gastrointestinal haemorrhage [Recovered/Resolved]
  - Drug interaction [Unknown]

NARRATIVE: CASE EVENT DATE: 20190803
